FAERS Safety Report 5170631-2 (Version None)
Quarter: 2006Q4

REPORT INFORMATION
  Report Type: 
  Country: None (occurrence: None)
  Receive Date: 20061205
  Receipt Date: 20061120
  Transmission Date: 20070319
  Serious: Yes (Hospitalization)
  Sender: FDA-Public Use
  Company Number: 2006144618

PATIENT
  Sex: Female

DRUGS (5)
  1. SULFASALAZINE [Suspect]
     Indication: COLITIS ULCERATIVE
     Dosage: 4 GRAM (1 GRAM, 4 IN 1 D), ORAL
     Route: 048
     Dates: end: 20061103
  2. CODEINE PHOSPHATE [Concomitant]
  3. CYCLIZINE [Concomitant]
  4. FOLIC ACID [Concomitant]
  5. RANITIDINE [Concomitant]

REACTIONS (6)
  - ABDOMINAL PAIN [None]
  - BLOOD ALKALINE PHOSPHATASE INCREASED [None]
  - CHEST PAIN [None]
  - LIVER FUNCTION TEST ABNORMAL [None]
  - NAUSEA [None]
  - VOMITING [None]
